FAERS Safety Report 17981902 (Version 6)
Quarter: 2021Q3

REPORT INFORMATION
  Report Type: Other
  Country: CA (occurrence: CA)
  Receive Date: 20200706
  Receipt Date: 20210924
  Transmission Date: 20211014
  Serious: Yes (Hospitalization, Other)
  Sender: FDA-Public Use
  Company Number: CA-ROCHE-2636045

PATIENT
  Age: 50 Year
  Sex: Female

DRUGS (4)
  1. OCREVUS [Suspect]
     Active Substance: OCRELIZUMAB
     Indication: RELAPSING-REMITTING MULTIPLE SCLEROSIS
     Dosage: DAY 0, 14 THEN 600 MG IN 6 MONTHS
     Route: 042
     Dates: start: 20180611
  2. MAGNESIUM [Concomitant]
     Active Substance: MAGNESIUM
  3. SALBUTAMOL [Concomitant]
     Active Substance: ALBUTEROL
  4. ATROVENT [Concomitant]
     Active Substance: IPRATROPIUM BROMIDE

REACTIONS (5)
  - Thyroid mass [Not Recovered/Not Resolved]
  - Intestinal mass [Not Recovered/Not Resolved]
  - Fatigue [Recovering/Resolving]
  - Pneumonia fungal [Recovered/Resolved]
  - Squamous cell carcinoma of lung [Not Recovered/Not Resolved]

NARRATIVE: CASE EVENT DATE: 20200606
